FAERS Safety Report 15124544 (Version 1)
Quarter: 2018Q3

REPORT INFORMATION
  Report Type: Report from Study
  Country: SK (occurrence: SK)
  Receive Date: 20180710
  Receipt Date: 20180710
  Transmission Date: 20181010
  Serious: No
  Sender: FDA-Public Use
  Company Number: SK-SA-2017SA115837

PATIENT
  Age: 33 Year
  Sex: Male

DRUGS (1)
  1. ALEMTUZUMAB [Suspect]
     Active Substance: ALEMTUZUMAB
     Indication: MULTIPLE SCLEROSIS RELAPSE
     Dosage: 12 MG,QD
     Route: 041
     Dates: start: 20170529, end: 20170602

REACTIONS (10)
  - Paraesthesia [Recovered/Resolved]
  - Solar urticaria [Recovered/Resolved]
  - Trigeminal neuralgia [Recovered/Resolved]
  - Sinusitis [Recovered/Resolved]
  - Nasopharyngitis [Recovered/Resolved]
  - Alanine aminotransferase increased [Recovering/Resolving]
  - Oral herpes [Recovered/Resolved]
  - Aspartate aminotransferase increased [Recovered/Resolved]
  - Urticaria [Recovered/Resolved]
  - Rash [Recovered/Resolved]

NARRATIVE: CASE EVENT DATE: 20170602
